FAERS Safety Report 4451373-5 (Version None)
Quarter: 2004Q3

REPORT INFORMATION
  Report Type: 
  Country: None (occurrence: None)
  Receive Date: 20040916
  Receipt Date: 20040909
  Transmission Date: 20050211
  Serious: Yes (Death)
  Sender: FDA-Public Use
  Company Number: BE-JNJFOC-20040903204

PATIENT
  Age: 82 Year
  Sex: Male

DRUGS (1)
  1. PROPULSID [Suspect]
     Indication: DIABETIC GASTROPARESIS
     Route: 049
     Dates: start: 20031212

REACTIONS (1)
  - CEREBROVASCULAR ACCIDENT [None]
